FAERS Safety Report 9941513 (Version 1)
Quarter: 2014Q1

REPORT INFORMATION
  Report Type: Report from Study
  Country: US (occurrence: US)
  Receive Date: 20140303
  Receipt Date: 20140303
  Transmission Date: 20141002
  Serious: No
  Sender: FDA-Public Use
  Company Number: US-ABBVIE-13P-163-1039387-00

PATIENT
  Age: 46 Year
  Sex: Female

DRUGS (5)
  1. HUMIRA [Suspect]
     Indication: COLITIS ULCERATIVE
     Dates: start: 20121012
  2. SULFASALAZINE [Concomitant]
     Indication: COLITIS ULCERATIVE
     Dosage: 2 TABS, 3 TIMES DAILY
  3. OMEPRAZOLE [Concomitant]
     Indication: GASTROOESOPHAGEAL REFLUX DISEASE
  4. ZOFRAN [Concomitant]
     Indication: NAUSEA
     Dosage: EVERY 6 HOURS, AS NEEDED
  5. TYLENOL EXTRA STRENGTH [Concomitant]
     Indication: PAIN

REACTIONS (2)
  - Pain in extremity [Not Recovered/Not Resolved]
  - Drug dose omission [Not Recovered/Not Resolved]
